FAERS Safety Report 16623208 (Version 3)
Quarter: 2019Q3

REPORT INFORMATION
  Report Type: Spontaneous
  Country: US (occurrence: US)
  Receive Date: 20190723
  Receipt Date: 20190816
  Transmission Date: 20191004
  Serious: Yes (Other)
  Sender: FDA-Public Use
  Company Number: US-FRESENIUS MEDICAL CARE RENAL THERAPIES GROUP-FMC-1907-000932

PATIENT
  Age: 56 Year
  Sex: Female

DRUGS (2)
  1. DELFLEX WITH DEXTROSE 1.5% LOW MAGNESIUM LOW CALCIUM [Suspect]
     Active Substance: CALCIUM CHLORIDE\DEXTROSE\MAGNESIUM CHLORIDE\SODIUM CHLORIDE\SODIUM LACTATE
     Indication: END STAGE RENAL DISEASE
     Dosage: 5 EXCHANGES, A FILL VOLUME OF 2400ML, DWELL TIME OF 1HR 30MINS, AND LAST FILL OF 500ML.
     Route: 033
     Dates: start: 20160209
  2. DELFLEX WITH DEXTROSE 2.5% LOW MAGNESIUM LOW CALCIUM [Suspect]
     Active Substance: CALCIUM CHLORIDE\DEXTROSE\MAGNESIUM CHLORIDE\SODIUM CHLORIDE\SODIUM LACTATE
     Indication: END STAGE RENAL DISEASE
     Dosage: 5 EXCHANGES, A FILL VOLUME OF 2400ML, DWELL TIME OF 1HR 30MINS, AND LAST FILL OF 500ML.
     Route: 033

REACTIONS (2)
  - Peritonitis bacterial [Recovering/Resolving]
  - Umbilical hernia [Recovering/Resolving]

NARRATIVE: CASE EVENT DATE: 20190614
